FAERS Safety Report 8519192-8 (Version None)
Quarter: 2012Q3

REPORT INFORMATION
  Report Type: 
  Country: None (occurrence: None)
  Receive Date: 20120718
  Receipt Date: 20120709
  Transmission Date: 20120928
  Serious: Yes (Other)
  Sender: FDA-Public Use
  Company Number: US-ELI_LILLY_AND_COMPANY-US201207002814

PATIENT
  Sex: Male

DRUGS (1)
  1. EFFIENT [Suspect]
     Indication: ACUTE MYOCARDIAL INFARCTION
     Dosage: UNK, UNKNOWN

REACTIONS (5)
  - VASCULAR PSEUDOANEURYSM [None]
  - ARTERIAL HAEMORRHAGE [None]
  - ARTERIAL INJURY [None]
  - POST PROCEDURAL COMPLICATION [None]
  - SKIN NECROSIS [None]
